FAERS Safety Report 6402271-9 (Version None)
Quarter: 2009Q4

REPORT INFORMATION
  Report Type: 
  Country: None (occurrence: None)
  Receive Date: 20091015
  Receipt Date: 20091003
  Transmission Date: 20100525
  Serious: Yes (Other)
  Sender: FDA-Public Use
  Company Number: PHHY2009BR42964

PATIENT
  Sex: Male

DRUGS (1)
  1. DIOVAN AMLO FIX [Suspect]
     Dosage: 320/5 MG
     Dates: start: 20090701

REACTIONS (3)
  - BLOOD PRESSURE FLUCTUATION [None]
  - CATARACT OPERATION [None]
  - HYPERTENSION [None]
